FAERS Safety Report 9449619 (Version 1)
Quarter: 2013Q3

REPORT INFORMATION
  Report Type: Spontaneous
  Country: US (occurrence: US)
  Receive Date: 20130809
  Receipt Date: 20130809
  Transmission Date: 20140515
  Serious: Yes (Other)
  Sender: FDA-Public Use
  Company Number: US-PFIZER INC-2013230460

PATIENT
  Age: 64 Year
  Sex: Female
  Weight: 39.46 kg

DRUGS (1)
  1. ADVIL COLD AND SINUS [Suspect]
     Indication: SINUS DISORDER
     Dosage: ^HALF OF 200MG TABLET^, AS NEEDED
     Route: 048

REACTIONS (1)
  - Gastric ulcer [Unknown]
